FAERS Safety Report 13513858 (Version 1)
Quarter: 2017Q2

REPORT INFORMATION
  Report Type: Spontaneous
  Country: US (occurrence: US)
  Receive Date: 20170504
  Receipt Date: 20170504
  Transmission Date: 20170830
  Serious: No
  Sender: FDA-Public Use
  Company Number: US-PFIZER INC-2017189021

PATIENT
  Sex: Female

DRUGS (1)
  1. XELJANZ XR [Suspect]
     Active Substance: TOFACITINIB CITRATE
     Indication: RHEUMATOID ARTHRITIS
     Dosage: 11 MG, UNK

REACTIONS (16)
  - Rash [Unknown]
  - Paraesthesia [Unknown]
  - Synovitis [Unknown]
  - Arthralgia [Unknown]
  - Musculoskeletal stiffness [Unknown]
  - Skin lesion [Unknown]
  - Headache [Unknown]
  - Dry skin [Unknown]
  - Tremor [Unknown]
  - Hypoaesthesia [Unknown]
  - Balance disorder [Unknown]
  - Heart sounds abnormal [Unknown]
  - Reflexes abnormal [Unknown]
  - Livedo reticularis [Unknown]
  - Muscular weakness [Unknown]
  - Gait disturbance [Unknown]
